FAERS Safety Report 4517085-4 (Version None)
Quarter: 2004Q4

REPORT INFORMATION
  Report Type: 
  Country: None (occurrence: None)
  Receive Date: 20041202
  Receipt Date: 20041124
  Transmission Date: 20050328
  Serious: Yes (Other)
  Sender: FDA-Public Use
  Company Number: US-AMGEN-US100899

PATIENT
  Age: 91 Year
  Sex: Male

DRUGS (2)
  1. EPOGEN [Suspect]
     Indication: ANAEMIA OF MALIGNANT DISEASE
  2. ANTIHYPERTENSIVES [Concomitant]

REACTIONS (3)
  - HALLUCINATION [None]
  - INSOMNIA [None]
  - MENTAL DISORDER [None]
